FAERS Safety Report 5360870-X (Version None)
Quarter: 2007Q2

REPORT INFORMATION
  Report Type: 
  Country: None (occurrence: None)
  Receive Date: 20070530
  Receipt Date: 20070326
  Transmission Date: 20071010
  Serious: No
  Sender: FDA-Public Use
  Company Number: 2007PV032420

PATIENT
  Age: 52 Year
  Sex: Female
  Weight: 95.709 kg

DRUGS (4)
  1. BYETTA [Suspect]
     Indication: DIABETES MELLITUS NON-INSULIN-DEPENDENT
     Dosage: 10 MCG; 5 MCG : QPM; SC
     Route: 058
     Dates: start: 20070314, end: 20070320
  2. BYETTA [Suspect]
     Indication: DIABETES MELLITUS NON-INSULIN-DEPENDENT
     Dosage: 10 MCG; 5 MCG : QPM; SC
     Route: 058
     Dates: start: 20070321
  3. NOVOLOG MIX 70/30 [Concomitant]
  4. GLIMEPIRIDE [Concomitant]

REACTIONS (4)
  - BLOOD GLUCOSE INCREASED [None]
  - DECREASED APPETITE [None]
  - DRUG INEFFECTIVE [None]
  - WEIGHT DECREASED [None]
